FAERS Safety Report 8771895 (Version 2)
Quarter: 2012Q4

REPORT INFORMATION
  Report Type: 
  Country: BE (occurrence: JP)
  Receive Date: 20120906
  Receipt Date: 20120906
  Transmission Date: 20130627
  Serious: Yes (Life-Threatening, Other)
  Sender: FDA-Public Use
  Company Number: JP-JNJFOC-2007064158

PATIENT
  Age: 38 Year
  Sex: Male
  Weight: 74 kg

DRUGS (4)
  1. ZYRTEC (TABLETS) [Suspect]
     Route: 048
  2. ZYRTEC (TABLETS) [Suspect]
     Indication: DERMATITIS ATOPIC
     Dosage: Frequency Text: DAILY Daily Dose Text: 10MG
     Route: 048
     Dates: start: 20070703, end: 20070801
  3. SUPLATAST TOSILATE [Concomitant]
     Dosage: Frequency Text: DAILY Daily Dose Text: 300MG
     Route: 048
     Dates: start: 20061025
  4. MEQUITAZINE [Concomitant]
     Route: 048
     Dates: start: 20070619

REACTIONS (4)
  - Suicidal ideation [Recovering/Resolving]
  - Depressive symptom [Recovering/Resolving]
  - Hallucination [Recovering/Resolving]
  - Irritability [Recovering/Resolving]
